FAERS Safety Report 5503524-9 (Version None)
Quarter: 2007Q4

REPORT INFORMATION
  Report Type: 
  Country: None (occurrence: None)
  Receive Date: 20071029
  Receipt Date: 20071016
  Transmission Date: 20080405
  Serious: Yes (Other)
  Sender: FDA-Public Use
  Company Number: 2007SP020248

PATIENT
  Age: 65 Year
  Sex: Female
  Weight: 63.5036 kg

DRUGS (1)
  1. MIRALAX [Suspect]
     Indication: DRUG USE FOR UNKNOWN INDICATION
     Dosage: 1 DF; QD; PO
     Route: 048
     Dates: start: 20070920, end: 20070925

REACTIONS (5)
  - CONSTIPATION [None]
  - FAECAL INCONTINENCE [None]
  - FLATULENCE [None]
  - HAEMORRHAGE [None]
  - MUSCLE SPASMS [None]
